FAERS Safety Report 7137771-X (Version None)
Quarter: 2010Q4

REPORT INFORMATION
  Report Type: 
  Country: None (occurrence: None)
  Receive Date: 20101206
  Receipt Date: 20101124
  Transmission Date: 20110411
  Serious: Yes (Other)
  Sender: FDA-Public Use
  Company Number: CO-ABBOTT-10P-036-0687579-00

PATIENT
  Age: 8 Year
  Sex: Female

DRUGS (1)
  1. SEVOFLURANE [Suspect]
     Indication: INDUCTION OF ANAESTHESIA
     Route: 055
     Dates: start: 20101122, end: 20101122

REACTIONS (2)
  - ANAESTHETIC COMPLICATION [None]
  - DRUG INEFFECTIVE [None]
